FAERS Safety Report 4791647-1 (Version None)
Quarter: 2005Q4

REPORT INFORMATION
  Report Type: 
  Country: None (occurrence: None)
  Receive Date: 20051007
  Receipt Date: 20050926
  Transmission Date: 20060501
  Serious: Yes (Life-Threatening, Other)
  Sender: FDA-Public Use
  Company Number: DE-BRISTOL-MYERS SQUIBB COMPANY-13123260

PATIENT
  Age: 59 Year
  Sex: Male
  Weight: 74 kg

DRUGS (4)
  1. PRAVASIN [Suspect]
     Indication: HYPERCHOLESTEROLAEMIA
     Route: 048
     Dates: start: 20050908, end: 20050919
  2. ASPIRIN [Concomitant]
     Indication: CORONARY ARTERY DISEASE
  3. CONCOR [Concomitant]
     Indication: HYPERTENSION
  4. PANTOZOL [Concomitant]
     Dates: start: 20050911, end: 20050919

REACTIONS (2)
  - CHEST PAIN [None]
  - SYNCOPE [None]
